FAERS Safety Report 21273723 (Version 2)
Quarter: 2022Q4

REPORT INFORMATION
  Report Type: Spontaneous
  Country: US (occurrence: None)
  Receive Date: 20220831
  Receipt Date: 20221013
  Transmission Date: 20230113
  Serious: No
  Sender: FDA-Public Use
  Company Number: 2022A281621

PATIENT
  Age: 27123 Day
  Sex: Female

DRUGS (1)
  1. FASENRA [Suspect]
     Active Substance: BENRALIZUMAB
     Indication: Asthma
     Route: 058
     Dates: start: 2019

REACTIONS (3)
  - Fatigue [Not Recovered/Not Resolved]
  - Feeling abnormal [Unknown]
  - Medication error [Unknown]

NARRATIVE: CASE EVENT DATE: 20220725
